FAERS Safety Report 7288973-3 (Version None)
Quarter: 2011Q1

REPORT INFORMATION
  Report Type: 
  Country: None (occurrence: None)
  Receive Date: 20110211
  Receipt Date: 20110203
  Transmission Date: 20110831
  Serious: Yes (Other)
  Sender: FDA-Public Use
  Company Number: US-BAXTER-2011BH003069

PATIENT

DRUGS (5)
  1. DEXTROSE 5% AND SODIUM CHLORIDE 0.45% IN PLASTIC CONTAINER [Concomitant]
     Indication: FLUID REPLACEMENT
     Route: 042
  2. NIFURTIMOX [Suspect]
     Indication: NEUROBLASTOMA
     Route: 048
  3. CYCLOPHOSPHAMIDE [Suspect]
     Indication: NEUROBLASTOMA
     Route: 042
  4. TOPOTECAN [Suspect]
     Indication: NEUROBLASTOMA
     Route: 042
  5. NIFURTIMOX [Suspect]
     Route: 048

REACTIONS (1)
  - PULMONARY HAEMORRHAGE [None]
